FAERS Safety Report 4494419-0 (Version None)
Quarter: 2004Q4

REPORT INFORMATION
  Report Type: 
  Country: None (occurrence: None)
  Receive Date: 20041104
  Receipt Date: 20041104
  Transmission Date: 20050328
  Serious: Yes (Life-Threatening, Hospitalization)
  Sender: FDA-Public Use
  Company Number: None

PATIENT
  Age: 81 Year
  Sex: Male
  Weight: 91.6266 kg

DRUGS (9)
  1. WARFARIN SODIUM [Suspect]
     Indication: ATRIAL FIBRILLATION
     Dosage: 2.5 MG PO DAILY  PTA
     Route: 048
  2. CIPRO [Concomitant]
  3. BACTRIM [Concomitant]
  4. REGLAN [Concomitant]
  5. ADALAT [Concomitant]
  6. ZESTRIL [Concomitant]
  7. PROSCAR [Concomitant]
  8. SINGULAIR [Concomitant]
  9. MAXZIDE [Concomitant]

REACTIONS (2)
  - GASTROINTESTINAL HAEMORRHAGE [None]
  - INTERNATIONAL NORMALISED RATIO INCREASED [None]
